FAERS Safety Report 5160544-4 (Version None)
Quarter: 2006Q4

REPORT INFORMATION
  Report Type: 
  Country: None (occurrence: None)
  Receive Date: 20061121
  Receipt Date: 20061109
  Transmission Date: 20070319
  Serious: Yes (Other)
  Sender: FDA-Public Use
  Company Number: 2006VX001861

PATIENT
  Sex: Male

DRUGS (2)
  1. EFUDEX [Suspect]
     Indication: SKIN PAPILLOMA
     Dosage: QD;TOP
     Route: 061
     Dates: start: 20050214, end: 20050629
  2. LOESTRIN [Concomitant]

REACTIONS (2)
  - DRUG EXPOSURE DURING PREGNANCY [None]
  - TALIPES [None]
